FAERS Safety Report 7357058-X (Version None)
Quarter: 2011Q1

REPORT INFORMATION
  Report Type: 
  Country: None (occurrence: None)
  Receive Date: 20110308
  Receipt Date: 20110222
  Transmission Date: 20110831
  Serious: Yes (Hospitalization)
  Sender: FDA-Public Use
  Company Number: CIP11000374

PATIENT
  Age: 63 Year
  Sex: Female

DRUGS (1)
  1. BENET (RISEDRONATE SODIUM) TABLET, 17.5 MG [Suspect]
     Indication: OSTEOPOROSIS
     Dosage: 17.5 MG ONE DOSE ONLY, ORAL
     Route: 048
     Dates: start: 20110205, end: 20110205

REACTIONS (11)
  - PAIN [None]
  - DIZZINESS [None]
  - POSTURE ABNORMAL [None]
  - BACK PAIN [None]
  - ARTHRALGIA [None]
  - DYSSTASIA [None]
  - DYSPNOEA [None]
  - MYALGIA [None]
  - HYPOKINESIA [None]
  - CHEST PAIN [None]
  - INSOMNIA [None]
